FAERS Safety Report 21881216 (Version 1)
Quarter: 2023Q1

REPORT INFORMATION
  Report Type: Spontaneous
  Country: MA (occurrence: MA)
  Receive Date: 20230118
  Receipt Date: 20230118
  Transmission Date: 20230418
  Serious: Yes (Other)
  Sender: FDA-Public Use
  Company Number: MA-BoehringerIngelheim-2023-BI-212798

PATIENT
  Age: 64 Year
  Sex: Female

DRUGS (3)
  1. JARDIANCE [Suspect]
     Active Substance: EMPAGLIFLOZIN
     Indication: Diabetes mellitus
     Route: 048
     Dates: start: 201910, end: 202211
  2. Metformine 850 tablets [Concomitant]
     Indication: Product used for unknown indication
     Dosage: 850 TABS IN MORNING AND EVENING
  3. glimeperide 4 mg [Concomitant]
     Indication: Product used for unknown indication

REACTIONS (1)
  - Bladder cancer [Unknown]

NARRATIVE: CASE EVENT DATE: 20221001
